FAERS Safety Report 8549356 (Version 4)
Quarter: 2012Q4

REPORT INFORMATION
  Report Type: 
  Country: JP (occurrence: JP)
  Receive Date: 20120507
  Receipt Date: 20120904
  Transmission Date: 20130627
  Serious: Yes (Hospitalization)
  Sender: FDA-Public Use
  Company Number: JP-BAYER-2012-043893

PATIENT
  Age: 67 Year
  Sex: Male
  Weight: 53.06 kg

DRUGS (24)
  1. NEXAVAR [Suspect]
     Indication: HEPATIC NEOPLASM MALIGNANT
     Dosage: 400 mg, BID
     Route: 048
     Dates: start: 20110412, end: 20110418
  2. NEXAVAR [Suspect]
     Indication: HEPATIC NEOPLASM MALIGNANT
     Dosage: 400 mg, UNK
     Route: 048
     Dates: start: 20110419, end: 20110627
  3. NEXAVAR [Suspect]
     Indication: HEPATIC NEOPLASM MALIGNANT
     Dosage: 400 mg, UNK
     Route: 048
     Dates: start: 20110727, end: 20110815
  4. NEXAVAR [Suspect]
     Indication: HEPATIC NEOPLASM MALIGNANT
     Dosage: 800 mg, UNK
     Route: 048
     Dates: start: 20110816, end: 20110914
  5. NEXAVAR [Suspect]
     Indication: HEPATIC NEOPLASM MALIGNANT
     Dosage: 400 mg, UNK
     Route: 048
     Dates: start: 20110915, end: 20111018
  6. NEXAVAR [Suspect]
     Indication: HEPATIC NEOPLASM MALIGNANT
     Dosage: 200 mg, UNK
     Dates: start: 20111019, end: 20111027
  7. NEXAVAR [Suspect]
     Indication: HEPATIC NEOPLASM MALIGNANT
     Dosage: 400 mg, UNK
     Route: 048
     Dates: start: 20111028, end: 20111103
  8. NEXAVAR [Suspect]
     Indication: HEPATIC NEOPLASM MALIGNANT
     Dosage: 600 mg, UNK
     Route: 048
     Dates: start: 20111104, end: 20111224
  9. NEXAVAR [Suspect]
     Indication: HEPATIC NEOPLASM MALIGNANT
     Dosage: 400 mg, UNK
     Route: 048
     Dates: start: 20111225, end: 20120213
  10. NEXAVAR [Suspect]
     Indication: HEPATIC NEOPLASM MALIGNANT
     Dosage: 200 mg, UNK
     Route: 048
     Dates: start: 20120219, end: 20120324
  11. NEXAVAR [Suspect]
     Indication: HEPATIC NEOPLASM MALIGNANT
     Dosage: 400 mg, UNK
     Route: 048
     Dates: start: 20120325, end: 20120414
  12. PARIET [Concomitant]
     Indication: GASTRITIS PROPHYLAXIS
     Dosage: Daily dose 10 mg
     Route: 048
     Dates: start: 20110623
  13. AMLODIN [Concomitant]
     Indication: HYPERTENSION
     Dosage: Daily dose 5 mg
     Route: 048
  14. URSO [Concomitant]
     Indication: CHRONIC HEPATITIS
     Dosage: Daily dose 600 mg
     Route: 048
  15. FERROMIA [Concomitant]
     Indication: IRON DEFICIENCY ANAEMIA
     Dosage: Daily dose 50 mg
     Route: 048
     Dates: start: 20110627
  16. UREPEARL [Concomitant]
     Indication: PROPHYLAXIS
     Dosage: UNK
     Route: 061
     Dates: start: 20110406
  17. UREPEARL [Concomitant]
     Indication: THERAPEUTIC PROCEDURE
  18. MYSER [Concomitant]
     Indication: PROPHYLAXIS
     Dosage: UNK
     Route: 061
     Dates: start: 20110422
  19. MYSER [Concomitant]
     Indication: THERAPEUTIC PROCEDURE
  20. LOPERAMIDE [Concomitant]
     Indication: PROPHYLAXIS
     Dosage: Daily dose 3 mg
     Route: 048
     Dates: start: 20110623
  21. LOPERAMIDE [Concomitant]
     Indication: THERAPEUTIC PROCEDURE
  22. BARACLUDE [Concomitant]
     Indication: VIRAL HEPATITIS CARRIER
     Dosage: Daily dose .5 mg
     Route: 048
     Dates: start: 20110407
  23. SULBACTAM [Concomitant]
     Indication: BRONCHITIS
     Dosage: UNK
     Dates: start: 20120425
  24. IRON COMPOUNDS [Concomitant]
     Indication: HAEMOGLOBIN DECREASED
     Dosage: UNK
     Dates: start: 20110601

REACTIONS (3)
  - Nephrotic syndrome [Recovering/Resolving]
  - Diarrhoea [Recovered/Resolved]
  - Palmar-plantar erythrodysaesthesia syndrome [None]
